FAERS Safety Report 13779647 (Version 1)
Quarter: 2017Q3

REPORT INFORMATION
  Report Type: Spontaneous
  Country: GB (occurrence: GB)
  Receive Date: 20170722
  Receipt Date: 20170722
  Transmission Date: 20171127
  Serious: Yes (Hospitalization, Disabling, Other)
  Sender: FDA-Public Use
  Company Number: GB-ACCORD-055952

PATIENT
  Age: 63 Year
  Sex: Female

DRUGS (14)
  1. ATORVASTATIN [Concomitant]
     Active Substance: ATORVASTATIN
  2. COLECALCIFEROL [Concomitant]
     Active Substance: CHOLECALCIFEROL
  3. PARACETAMOL [Concomitant]
     Active Substance: ACETAMINOPHEN
  4. MONOMIL XL [Concomitant]
     Active Substance: ISOSORBIDE MONONITRATE
  5. BUMETANIDE. [Concomitant]
     Active Substance: BUMETANIDE
  6. FOSTAIR [Concomitant]
     Active Substance: BECLOMETHASONE\FORMOTEROL
  7. THIAMINE. [Concomitant]
     Active Substance: THIAMINE
  8. HYDRALAZINE [Concomitant]
     Active Substance: HYDRALAZINE HYDROCHLORIDE
  9. OMEPRAZOLE. [Concomitant]
     Active Substance: OMEPRAZOLE
  10. VITAMIN B COMPLEX STRONG [Concomitant]
  11. CLOPIDOGREL [Suspect]
     Active Substance: CLOPIDOGREL BISULFATE
     Indication: PRODUCT USED FOR UNKNOWN INDICATION
     Route: 048
  12. BISOPROLOL [Concomitant]
     Active Substance: BISOPROLOL
  13. SALBUTAMOL [Concomitant]
     Active Substance: ALBUTEROL
  14. TIOTROPIUM [Concomitant]
     Active Substance: TIOTROPIUM

REACTIONS (2)
  - Compartment syndrome [Unknown]
  - Haemorrhagic diathesis [Unknown]
